FAERS Safety Report 7024091-7 (Version None)
Quarter: 2010Q4

REPORT INFORMATION
  Report Type: 
  Country: None (occurrence: None)
  Receive Date: 20101001
  Receipt Date: 20100923
  Transmission Date: 20110411
  Serious: Yes (Other)
  Sender: FDA-Public Use
  Company Number: BR-EISAI INC.-E3810-04112-SPO-BR

PATIENT
  Sex: Female

DRUGS (2)
  1. PARIET (RABEPRAZOLE) [Suspect]
     Indication: GASTRITIS
     Route: 048
     Dates: start: 20100923
  2. LEXOTAN [Concomitant]

REACTIONS (5)
  - ABDOMINAL PAIN UPPER [None]
  - DRY MOUTH [None]
  - FEELING HOT [None]
  - HEADACHE [None]
  - VIITH NERVE PARALYSIS [None]
